FAERS Safety Report 6717109-X (Version None)
Quarter: 2010Q2

REPORT INFORMATION
  Report Type: 
  Country: None (occurrence: None)
  Receive Date: 20100510
  Receipt Date: 20100430
  Transmission Date: 20101027
  Serious: Yes (Death)
  Sender: FDA-Public Use
  Company Number: IT-BRISTOL-MYERS SQUIBB COMPANY-15046279

PATIENT
  Age: 53 Year
  Sex: Male

DRUGS (3)
  1. GLUCOPHAGE [Suspect]
     Indication: TYPE 2 DIABETES MELLITUS
     Dosage: 1000MG
     Route: 048
     Dates: start: 20080708, end: 20100218
  2. SOLOSA [Suspect]
     Indication: TYPE 2 DIABETES MELLITUS
     Dosage: WAS RECEIVING 2MG (17DEC08-UNK) DOSE INCREASED TO 4MG FROM 11JAN2010
     Route: 048
     Dates: start: 20081217, end: 20100218
  3. VYTORIN [Suspect]
     Indication: HYPERCHOLESTEROLAEMIA
     Dosage: 1 DF = 10MG/20MG
     Route: 048
     Dates: start: 20100121, end: 20100218

REACTIONS (1)
  - HYPOGLYCAEMIA [None]
